FAERS Safety Report 4501550-X (Version None)
Quarter: 2004Q3

REPORT INFORMATION
  Report Type: 
  Country: None (occurrence: None)
  Receive Date: 20040928
  Receipt Date: 20040827
  Transmission Date: 20050211
  Serious: No
  Sender: FDA-Public Use
  Company Number: 04P-163-0271703-00

PATIENT
  Age: 52 Year
  Sex: Female
  Weight: 105.2345 kg

DRUGS (7)
  1. HUMIRA [Suspect]
     Indication: RHEUMATOID ARTHRITIS
     Dosage: 40 MG, 1 IN 1 WK, SUBCUTANEOUS
     Route: 058
     Dates: start: 20030601, end: 20040615
  2. HUMIRA [Suspect]
     Indication: RHEUMATOID ARTHRITIS
     Dosage: 40 MG, 1 IN 1 WK, SUBCUTANEOUS
     Route: 058
     Dates: start: 20040615, end: 20040706
  3. METHOTRECATE SODIUM [Concomitant]
  4. RABEPRAZOLE SODIUM [Concomitant]
  5. FOLIC ACID [Concomitant]
  6. HYDROCODONE [Concomitant]
  7. PROMETHAZINE [Concomitant]

REACTIONS (3)
  - CHOLELITHIASIS [None]
  - LYMPHADENOPATHY [None]
  - PNEUMONIA [None]
